FAERS Safety Report 10957683 (Version 2)
Quarter: 2015Q2

REPORT INFORMATION
  Report Type: Spontaneous
  Country: DE (occurrence: DE)
  Receive Date: 20150326
  Receipt Date: 20150529
  Transmission Date: 20150821
  Serious: Yes (Other)
  Sender: FDA-Public Use
  Company Number: DE-ASTRAZENECA-2015SE25356

PATIENT
  Sex: Female
  Weight: 67 kg

DRUGS (3)
  1. ASCOTOP [Suspect]
     Active Substance: ZOLMITRIPTAN
     Indication: MIGRAINE
     Route: 048
  2. ASCOTOP [Suspect]
     Active Substance: ZOLMITRIPTAN
     Indication: MIGRAINE
     Dosage: FOR 2-3 DAYS
     Route: 048
     Dates: start: 201410, end: 201504
  3. ASCOTOP [Suspect]
     Active Substance: ZOLMITRIPTAN
     Indication: MIGRAINE
     Dosage: THEN SHE HAD 1-3 APPLICATIONS A DAY, WITH A DAILY DOSE OF 5 TILL 15 MG
     Route: 048

REACTIONS (2)
  - Pain in extremity [Recovered/Resolved]
  - Facial pain [Recovered/Resolved]
